FAERS Safety Report 6686027-8 (Version None)
Quarter: 2010Q2

REPORT INFORMATION
  Report Type: 
  Country: None (occurrence: None)
  Receive Date: 20100415
  Receipt Date: 20100415
  Transmission Date: 20101027
  Serious: Yes (Hospitalization)
  Sender: FDA-Public Use
  Company Number: None

PATIENT
  Age: 49 Year
  Sex: Female
  Weight: 69.6 kg

DRUGS (13)
  1. CRESTOR [Suspect]
     Indication: FEELING ABNORMAL
     Dosage: 20 MG DAILY PO
     Route: 048
     Dates: start: 20100309, end: 20100409
  2. PRILOSEC [Concomitant]
  3. RAMIPRIL [Concomitant]
  4. TINZANIDINE HYDROCHLORIDE [Concomitant]
  5. LEVOTHYROXINE SODIUM [Concomitant]
  6. WELCHOL [Concomitant]
  7. DIVALPROEX SODIUM [Concomitant]
  8. LOVAZA [Concomitant]
  9. OXYBUTYNIN CHLORIDE ER [Concomitant]
  10. ROZEREM [Concomitant]
  11. CRESTOR [Concomitant]
  12. CLONAZEPAM [Concomitant]
  13. ATENOLOL [Concomitant]

REACTIONS (1)
  - RHABDOMYOLYSIS [None]
